FAERS Safety Report 12245820 (Version 2)
Quarter: 2016Q2

REPORT INFORMATION
  Report Type: Spontaneous
  Country: ES (occurrence: ES)
  Receive Date: 20160407
  Receipt Date: 20160425
  Transmission Date: 20160815
  Serious: Yes (Other)
  Sender: FDA-Public Use
  Company Number: ES-ALLERGAN-1651406US

PATIENT
  Age: 50 Year
  Sex: Female
  Weight: 65.4 kg

DRUGS (2)
  1. ESMYA [Suspect]
     Active Substance: ULIPRISTAL ACETATE
     Indication: UTERINE LEIOMYOMA
     Dosage: 1 TABLET DAILY
     Route: 048
     Dates: start: 20160306, end: 20160309
  2. ESMYA [Suspect]
     Active Substance: ULIPRISTAL ACETATE
     Indication: MENORRHAGIA

REACTIONS (6)
  - Blood pressure increased [Recovering/Resolving]
  - Dry mouth [Recovered/Resolved]
  - Nervousness [Recovered/Resolved]
  - Chest pain [Recovered/Resolved]
  - Hypertensive crisis [Recovered/Resolved]
  - Hyperhidrosis [Recovered/Resolved]

NARRATIVE: CASE EVENT DATE: 20160307
